FAERS Safety Report 9333255 (Version 1)
Quarter: 2013Q2

REPORT INFORMATION
  Report Type: Spontaneous
  Country: US (occurrence: US)
  Receive Date: 20130606
  Receipt Date: 20130606
  Transmission Date: 20140414
  Serious: No
  Sender: FDA-Public Use
  Company Number: US-009507513-1306USA002704

PATIENT
  Age: 44 Year
  Sex: Female
  Weight: 77.98 kg

DRUGS (1)
  1. VICTRELIS [Suspect]
     Indication: HEPATITIS C
     Dosage: 800 MG, TID
     Route: 048
     Dates: start: 20130513

REACTIONS (4)
  - Vulvovaginal rash [Unknown]
  - Dyspepsia [Unknown]
  - Fatigue [Unknown]
  - Rash [Unknown]
